FAERS Safety Report 7485326-X (Version None)
Quarter: 2011Q2

REPORT INFORMATION
  Report Type: 
  Country: None (occurrence: None)
  Receive Date: 20110517
  Receipt Date: 20100526
  Transmission Date: 20111010
  Serious: No
  Sender: FDA-Public Use
  Company Number: US-NOVEN-ALL1-2010-02411

PATIENT

DRUGS (6)
  1. DAYTRANA [Suspect]
     Dosage: 15 MG, OTHER (WEEKENDS)
     Route: 062
     Dates: start: 20090101, end: 20090101
  2. DAYTRANA [Suspect]
     Dosage: 15 MG, 1X/DAY:QD
     Route: 062
     Dates: start: 20090101, end: 20100415
  3. DAYTRANA [Suspect]
     Dosage: 10 MG, UNK
     Dates: start: 20070629
  4. DAYTRANA [Suspect]
     Dosage: 20 MG, OTHER (WEEKDAYS)
     Route: 062
     Dates: start: 20090101, end: 20090101
  5. DAYTRANA [Suspect]
     Dosage: 15 MG, 1X/DAY:QD
     Route: 062
     Dates: end: 20090101
  6. DAYTRANA [Suspect]
     Dosage: 20 MG, 1X/DAY:QD
     Route: 062
     Dates: start: 20100416, end: 20100423

REACTIONS (4)
  - INCORRECT DRUG ADMINISTRATION DURATION [None]
  - DRUG INEFFECTIVE [None]
  - PRODUCT QUALITY ISSUE [None]
  - PERSONALITY CHANGE [None]
